FAERS Safety Report 4929623-8 (Version None)
Quarter: 2006Q1

REPORT INFORMATION
  Report Type: 
  Country: None (occurrence: None)
  Receive Date: 20060224
  Receipt Date: 20060213
  Transmission Date: 20060701
  Serious: Yes (Other)
  Sender: FDA-Public Use
  Company Number: 2006021491

PATIENT
  Age: 74 Year
  Sex: Male
  Weight: 65.7716 kg

DRUGS (3)
  1. LIPITOR [Suspect]
     Indication: BLOOD CHOLESTEROL
     Dosage: 10 MG (10 MG,  1 IN 1 D)
  2. ASPIRIN TAB [Concomitant]
  3. METOPROLOL [Concomitant]

REACTIONS (6)
  - BODY HEIGHT DECREASED [None]
  - CARDIAC OPERATION [None]
  - CORONARY ARTERY OCCLUSION [None]
  - POSTOPERATIVE INFECTION [None]
  - URINARY TRACT INFECTION [None]
  - WRONG TECHNIQUE IN DRUG USAGE PROCESS [None]
